FAERS Safety Report 5249117-2 (Version None)
Quarter: 2007Q1

REPORT INFORMATION
  Report Type: 
  Country: None (occurrence: None)
  Receive Date: 20070228
  Receipt Date: 20070219
  Transmission Date: 20070707
  Serious: Yes (Hospitalization, Other)
  Sender: FDA-Public Use
  Company Number: US-BAYER-200710540BCC

PATIENT
  Sex: Female
  Weight: 109 kg

DRUGS (1)
  1. NEO-SYNEPHRINE REGULAR STRENGTH 1/2% SPRAY [Suspect]
     Indication: SINUS DISORDER
     Route: 045

REACTIONS (4)
  - ANEURYSM [None]
  - CEREBROVASCULAR ACCIDENT [None]
  - HEADACHE [None]
  - SINUS DISORDER [None]
